FAERS Safety Report 5357286-9 (Version None)
Quarter: 2007Q2

REPORT INFORMATION
  Report Type: 
  Country: None (occurrence: None)
  Receive Date: 20070614
  Receipt Date: 20070613
  Transmission Date: 20071010
  Serious: Yes (Other)
  Sender: FDA-Public Use
  Company Number: US-JNJFOC-20070403595

PATIENT
  Age: 72 Year
  Sex: Female

DRUGS (3)
  1. INVEGA [Suspect]
     Indication: SCHIZOPHRENIA
     Route: 048
  2. CLONAZEPAM [Concomitant]
  3. PAROXETINE [Concomitant]

REACTIONS (1)
  - RENAL FAILURE [None]
